FAERS Safety Report 6422192-5 (Version None)
Quarter: 2009Q4

REPORT INFORMATION
  Report Type: 
  Country: None (occurrence: None)
  Receive Date: 20091030
  Receipt Date: 20091023
  Transmission Date: 20100525
  Serious: Yes (Other)
  Sender: FDA-Public Use
  Company Number: PHHY2009JP45023

PATIENT
  Age: 47 Year
  Sex: Male

DRUGS (6)
  1. CYCLOSPORINE [Suspect]
     Indication: CORD BLOOD TRANSPLANT THERAPY
     Dosage: UNK
     Dates: start: 20050401
  2. METHOTREXATE [Concomitant]
     Indication: PROPHYLAXIS AGAINST GRAFT VERSUS HOST DISEASE
     Dosage: UNK
     Dates: start: 20050401
  3. IRRADIATION [Concomitant]
     Indication: CORD BLOOD TRANSPLANT THERAPY
     Dosage: 12 GY, UNK
     Dates: start: 20050401
  4. ARA-C [Concomitant]
     Indication: CORD BLOOD TRANSPLANT THERAPY
     Dosage: 12 G/M2
     Dates: start: 20050401
  5. NEUPOGEN [Concomitant]
     Indication: CORD BLOOD TRANSPLANT THERAPY
     Dosage: UNK
     Dates: start: 20050401
  6. CYCLOPHOSPHAMIDE [Concomitant]
     Indication: CORD BLOOD TRANSPLANT THERAPY
     Dosage: UNK
     Dates: start: 20050401

REACTIONS (6)
  - CYTOMEGALOVIRUS VIRAEMIA [None]
  - ENGRAFTMENT SYNDROME [None]
  - MESANGIOPROLIFERATIVE GLOMERULONEPHRITIS [None]
  - ORGANISING PNEUMONIA [None]
  - SEPSIS [None]
  - THROMBOTIC MICROANGIOPATHY [None]
